FAERS Safety Report 24686739 (Version 1)
Quarter: 2024Q4

REPORT INFORMATION
  Report Type: Spontaneous
  Country: CN (occurrence: CN)
  Receive Date: 20241202
  Receipt Date: 20241202
  Transmission Date: 20250115
  Serious: Yes (Life-Threatening)
  Sender: ROCHE
  Company Number: CN-BoehringerIngelheim-2024-BI-065860

PATIENT
  Age: 60 Year
  Sex: Female
  Weight: 75.0 kg

DRUGS (2)
  1. ALTEPLASE [Suspect]
     Active Substance: ALTEPLASE
     Indication: Product used for unknown indication
     Route: 042
     Dates: start: 20240907, end: 20240907
  2. ALTEPLASE [Suspect]
     Active Substance: ALTEPLASE
     Route: 065
     Dates: start: 20240907, end: 20240907

REACTIONS (6)
  - Cerebral haemorrhage [Unknown]
  - Brainstem compression [Unknown]
  - Shock [Unknown]
  - Blood pressure decreased [Unknown]
  - Breath sounds absent [Unknown]
  - Mydriasis [Unknown]

NARRATIVE: CASE EVENT DATE: 20240907
